FAERS Safety Report 11787201 (Version 3)
Quarter: 2016Q1

REPORT INFORMATION
  Report Type: Spontaneous
  Country: US (occurrence: US)
  Receive Date: 20151130
  Receipt Date: 20160122
  Transmission Date: 20160525
  Serious: Yes (Hospitalization)
  Sender: FDA-Public Use
  Company Number: US-JNJFOC-20151122663

PATIENT
  Age: 52 Year
  Sex: Female

DRUGS (8)
  1. XARELTO [Suspect]
     Active Substance: RIVAROXABAN
     Indication: PULMONARY EMBOLISM
     Route: 048
     Dates: start: 20151116
  2. INDOMETHACIN. [Concomitant]
     Active Substance: INDOMETHACIN
     Route: 065
  3. XARELTO [Suspect]
     Active Substance: RIVAROXABAN
     Indication: DEEP VEIN THROMBOSIS
     Route: 048
     Dates: end: 2015
  4. XARELTO [Suspect]
     Active Substance: RIVAROXABAN
     Indication: PULMONARY EMBOLISM
     Route: 048
     Dates: end: 2015
  5. VITAMIN E\VITAMINS [Concomitant]
     Active Substance: .ALPHA.-TOCOPHEROL\VITAMINS
     Route: 065
  6. ZYRTEC [Concomitant]
     Active Substance: CETIRIZINE HYDROCHLORIDE
     Route: 065
  7. LEVOFLOXACIN. [Concomitant]
     Active Substance: LEVOFLOXACIN
     Route: 065
  8. XARELTO [Suspect]
     Active Substance: RIVAROXABAN
     Indication: DEEP VEIN THROMBOSIS
     Route: 048
     Dates: start: 20151116

REACTIONS (5)
  - Menorrhagia [Unknown]
  - Pneumonia [Recovering/Resolving]
  - Pulmonary thrombosis [Recovering/Resolving]
  - Pulmonary embolism [Unknown]
  - Hypersensitivity [Recovering/Resolving]

NARRATIVE: CASE EVENT DATE: 2015
